APPROVED DRUG PRODUCT: METRONIDAZOLE IN PLASTIC CONTAINER
Active Ingredient: METRONIDAZOLE
Strength: 500MG/100ML
Dosage Form/Route: INJECTABLE;INJECTION
Application: A078084 | Product #001
Applicant: BAXTER HEALTHCARE CORP
Approved: Mar 31, 2008 | RLD: No | RS: No | Type: DISCN